FAERS Safety Report 19453450 (Version 1)
Quarter: 2021Q2

REPORT INFORMATION
  Report Type: Report from Study
  Country: AT (occurrence: AT)
  Receive Date: 20210623
  Receipt Date: 20210623
  Transmission Date: 20210717
  Serious: Yes (Hospitalization)
  Sender: FDA-Public Use
  Company Number: AT-ACCORD-229535

PATIENT
  Age: 40 Year
  Sex: Female
  Weight: 60 kg

DRUGS (19)
  1. ZOFRAN [Concomitant]
     Active Substance: ONDANSETRON HYDROCHLORIDE
     Indication: PRODUCT USED FOR UNKNOWN INDICATION
     Dosage: UNK
     Dates: start: 20161115, end: 20200417
  2. PARACETAMOL [Concomitant]
     Active Substance: ACETAMINOPHEN
     Indication: METASTASES TO CENTRAL NERVOUS SYSTEM
     Dosage: UNK
     Dates: start: 20170609, end: 20200417
  3. TRASTUZUMAB EMTANSINE [Suspect]
     Active Substance: ADO-TRASTUZUMAB EMTANSINE
     Indication: PRODUCT USED FOR UNKNOWN INDICATION
     Dosage: UNK
     Route: 042
     Dates: start: 20170821
  4. DENOSUMAB [Suspect]
     Active Substance: DENOSUMAB
     Indication: PRODUCT USED FOR UNKNOWN INDICATION
     Dosage: UNK
     Route: 058
     Dates: start: 20190319
  5. TRASTUZUMAB. [Suspect]
     Active Substance: TRASTUZUMAB
     Indication: HER2 POSITIVE BREAST CANCER
     Dosage: MOST RECENT DOSE ON 27/DEC/2019
     Route: 041
     Dates: start: 20180503
  6. DENOSUMAB [Suspect]
     Active Substance: DENOSUMAB
     Indication: HER2 POSITIVE BREAST CANCER
     Dosage: MOST RECENT DOSE OF DENOSUMAB 19/MAR/2019, 29/NOV/2018
     Route: 058
     Dates: start: 201611, end: 201904
  7. LETROZOLE. [Suspect]
     Active Substance: LETROZOLE
     Indication: HER2 POSITIVE BREAST CANCER
     Dosage: 2.5 MILLIGRAM, QD
     Route: 048
     Dates: start: 20180426
  8. TRASTUZUMAB/EMTANSINE [Suspect]
     Active Substance: ADO-TRASTUZUMAB EMTANSINE
     Indication: HER2 POSITIVE BREAST CANCER
     Dosage: 3.5 MILLIGRAM/KILOGRAM, Q4WEEKS
     Route: 042
     Dates: start: 20161114
  9. MIRANAX [Concomitant]
     Indication: PRODUCT USED FOR UNKNOWN INDICATION
     Dosage: UNK
     Dates: start: 20161115, end: 20200417
  10. PARKEMED [Concomitant]
     Active Substance: MEFENAMIC ACID
     Indication: DENTAL FISTULA
     Dates: start: 20181113, end: 20181120
  11. EMEND [Concomitant]
     Active Substance: APREPITANT
     Indication: PRODUCT USED FOR UNKNOWN INDICATION
     Dosage: ONGOING  CHECKED
     Dates: start: 20161115, end: 20200417
  12. LEUPRORELIN/LEUPRORELIN ACETATE [Suspect]
     Active Substance: LEUPROLIDE ACETATE
     Indication: HER2 POSITIVE BREAST CANCER
     Dosage: 11.25 MILLIGRAM, Q3MONTHS
     Route: 058
     Dates: start: 201804
  13. FORTECORTIN [Concomitant]
     Active Substance: DEXAMETHASONE
     Indication: PRODUCT USED FOR UNKNOWN INDICATION
     Dosage: UNK
     Dates: start: 20170330, end: 20200417
  14. PERTUZUMAB. [Suspect]
     Active Substance: PERTUZUMAB
     Indication: HER2 POSITIVE BREAST CANCER
     Dosage: MOST RECENT DOSE ON 27/DEC/2019
     Route: 042
     Dates: start: 201811
  15. TRASTUZUMAB EMTANSINE [Suspect]
     Active Substance: ADO-TRASTUZUMAB EMTANSINE
     Indication: HER2 POSITIVE BREAST CANCER
     Dosage: MOST RECENT DOSE PRIOR TO THE EVENT: 21/AUG/2017?MOST RECENT DOSE PRIOR TO THE EVENT: 22/MAY/2017
     Route: 042
     Dates: start: 20161114
  16. PERTUZUMAB. [Suspect]
     Active Substance: PERTUZUMAB
     Indication: HER2 POSITIVE BREAST CANCER
     Dosage: MOST RECENT DOSE PRIOR TO THE EVENT: 22/NOV/2018
     Route: 042
     Dates: start: 20181122
  17. PARKEMED [Concomitant]
     Active Substance: MEFENAMIC ACID
     Indication: DENTAL FISTULA
     Dates: start: 20170315, end: 20200417
  18. TRASTUZUMAB EMTANSINE [Suspect]
     Active Substance: ADO-TRASTUZUMAB EMTANSINE
     Indication: PRODUCT USED FOR UNKNOWN INDICATION
     Dosage: UNK
     Route: 042
     Dates: start: 20170522
  19. DENOSUMAB [Suspect]
     Active Substance: DENOSUMAB
     Indication: PRODUCT USED FOR UNKNOWN INDICATION
     Dosage: UNK
     Route: 058
     Dates: start: 20181129

REACTIONS (5)
  - Night sweats [Recovered/Resolved]
  - Spinal pain [Recovered/Resolved]
  - Vision blurred [Recovered/Resolved]
  - Chills [Recovered/Resolved]
  - Dental fistula [Recovered/Resolved]

NARRATIVE: CASE EVENT DATE: 20181112
